FAERS Safety Report 10098110 (Version 4)
Quarter: 2014Q3

REPORT INFORMATION
  Report Type: Report from Study
  Country: CA (occurrence: CA)
  Receive Date: 20140423
  Receipt Date: 20140711
  Transmission Date: 20150326
  Serious: Yes (Disabling, Other)
  Sender: FDA-Public Use
  Company Number: CA-BAYER-2014-016659

PATIENT
  Age: 50 Year
  Sex: Female

DRUGS (18)
  1. THYROXINE [Concomitant]
     Active Substance: LEVOTHYROXINE
  2. BACLOFEN. [Concomitant]
     Active Substance: BACLOFEN
  3. BETASERON [Suspect]
     Active Substance: INTERFERON BETA-1B
     Indication: MULTIPLE SCLEROSIS
     Dosage: 0.250 MG, UNK
     Dates: start: 20060101, end: 20140606
  4. NADOLOL. [Concomitant]
     Active Substance: NADOLOL
  5. PHENOBARBITAL. [Concomitant]
     Active Substance: PHENOBARBITAL
  6. AMITRIPTYLINE [Concomitant]
     Active Substance: AMITRIPTYLINE
  7. CRESTOR [Concomitant]
     Active Substance: ROSUVASTATIN CALCIUM
  8. COQ10 [Concomitant]
     Active Substance: UBIDECARENONE
  9. ZANTAC [Concomitant]
     Active Substance: RANITIDINE HYDROCHLORIDE
  10. DETROL LA [Concomitant]
     Active Substance: TOLTERODINE TARTRATE
  11. CLOBAZAM [Concomitant]
     Active Substance: CLOBAZAM
  12. LORAZEPAM. [Concomitant]
     Active Substance: LORAZEPAM
  13. RABEPRAZOLE [Concomitant]
     Active Substance: RABEPRAZOLE
  14. SERC [Concomitant]
     Active Substance: BETAHISTINE HYDROCHLORIDE
  15. DOCUSATE [Concomitant]
     Active Substance: DOCUSATE
  16. VITAMIN D [Concomitant]
     Active Substance: CHOLECALCIFEROL
  17. IMODIUM [Concomitant]
     Active Substance: LOPERAMIDE HYDROCHLORIDE
  18. SENOKOT [Concomitant]
     Active Substance: SENNOSIDES

REACTIONS (26)
  - Mobility decreased [Unknown]
  - Fall [None]
  - Limb discomfort [Recovering/Resolving]
  - Gait disturbance [Unknown]
  - Tonic clonic movements [Recovered/Resolved]
  - Diarrhoea [Unknown]
  - Amnesia [Unknown]
  - Partial seizures [None]
  - Secondary progressive multiple sclerosis [None]
  - Musculoskeletal chest pain [Unknown]
  - Contusion [Unknown]
  - Drug ineffective [None]
  - Dysgeusia [Unknown]
  - Generalised tonic-clonic seizure [Recovered/Resolved]
  - Headache [None]
  - Muscular weakness [None]
  - Wound [None]
  - Muscular weakness [None]
  - Chest pain [Unknown]
  - Vomiting [Unknown]
  - Fall [None]
  - Fall [Unknown]
  - Dizziness [Unknown]
  - Influenza [Unknown]
  - Asthenia [Unknown]
  - Dizziness [Unknown]

NARRATIVE: CASE EVENT DATE: 20131218
